FAERS Safety Report 8506893-0 (Version None)
Quarter: 2012Q3

REPORT INFORMATION
  Report Type: 
  Country: None (occurrence: None)
  Receive Date: 20120712
  Receipt Date: 20120703
  Transmission Date: 20120928
  Serious: Yes (Hospitalization)
  Sender: FDA-Public Use
  Company Number: US-BRISTOL-MYERS SQUIBB COMPANY-16710279

PATIENT
  Age: 67 Year
  Sex: Male

DRUGS (6)
  1. GLUCOTROL [Suspect]
     Indication: TYPE 2 DIABETES MELLITUS
  2. PLACEBO [Suspect]
     Indication: TYPE 2 DIABETES MELLITUS
     Dates: start: 20110811
  3. GLUCOPHAGE [Suspect]
     Indication: TYPE 2 DIABETES MELLITUS
  4. HUMULIN N [Suspect]
     Indication: TYPE 2 DIABETES MELLITUS
     Dosage: 1 DF: 120IU/UNITS, HUMULIN N INSULIN
  5. ASPIRIN [Concomitant]
     Dosage: 1 DF: }100MG 11AUG2011,01NOV2011,24JAN2012,27APR2012
  6. BLINDED: SAXAGLIPTIN [Suspect]
     Indication: TYPE 2 DIABETES MELLITUS
     Dates: start: 20110811

REACTIONS (1)
  - NON-CARDIAC CHEST PAIN [None]
